FAERS Safety Report 13983941 (Version 1)
Quarter: 2017Q3

REPORT INFORMATION
  Report Type: Spontaneous
  Country: US (occurrence: US)
  Receive Date: 20170918
  Receipt Date: 20170918
  Transmission Date: 20171128
  Serious: No
  Sender: FDA-Public Use
  Company Number: US-MIKART, INC.-2026676

PATIENT
  Sex: Female

DRUGS (1)
  1. CHLORZOXAZONE. [Suspect]
     Active Substance: CHLORZOXAZONE
     Route: 048

REACTIONS (1)
  - Irritability [Unknown]
